FAERS Safety Report 8857122 (Version 1)
Quarter: 2012Q4

REPORT INFORMATION
  Report Type: Spontaneous
  Country: US (occurrence: None)
  Receive Date: 20121022
  Receipt Date: 20121022
  Transmission Date: 20130627
  Serious: No
  Sender: FDA-Public Use
  Company Number: None

PATIENT
  Age: 62 Year
  Sex: Female
  Weight: 72.58 kg

DRUGS (1)
  1. MONTELUKAST [Suspect]
     Route: 048
     Dates: start: 20120824, end: 20121018

REACTIONS (2)
  - Asthma [None]
  - Sinusitis [None]
